FAERS Safety Report 5772396-X (Version None)
Quarter: 2008Q2

REPORT INFORMATION
  Report Type: 
  Country: None (occurrence: None)
  Receive Date: 20080613
  Receipt Date: 20080603
  Transmission Date: 20081010
  Serious: Yes (Other)
  Sender: FDA-Public Use
  Company Number: US-GILEAD-2008-0016703

PATIENT
  Sex: Male
  Weight: 94 kg

DRUGS (8)
  1. TRUVADA [Suspect]
     Indication: HIV INFECTION
     Route: 048
     Dates: start: 20080119
  2. ISENTRESS [Concomitant]
     Indication: HIV INFECTION
     Route: 048
     Dates: start: 20080119
  3. TYLENOL [Concomitant]
  4. SEROQUEL [Concomitant]
  5. CYMBALTA [Concomitant]
  6. ACYCLOVIR SODIUM [Concomitant]
  7. NIZORAL [Concomitant]
  8. ASPIRIN [Concomitant]

REACTIONS (3)
  - HYPERTENSION [None]
  - OEDEMA PERIPHERAL [None]
  - RENAL FAILURE [None]
